FAERS Safety Report 8519705-6 (Version None)
Quarter: 2012Q3

REPORT INFORMATION
  Report Type: 
  Country: None (occurrence: None)
  Receive Date: 20120719
  Receipt Date: 20120705
  Transmission Date: 20120928
  Serious: Yes (Death)
  Sender: FDA-Public Use
  Company Number: US-009507513-2012SP026608

PATIENT

DRUGS (1)
  1. PROVENTIL [Suspect]
     Indication: PRODUCT USED FOR UNKNOWN INDICATION

REACTIONS (1)
  - THERAPEUTIC PRODUCT INEFFECTIVE [None]
